FAERS Safety Report 6932059-1 (Version None)
Quarter: 2010Q3

REPORT INFORMATION
  Report Type: 
  Country: None (occurrence: None)
  Receive Date: 20100813
  Receipt Date: 20100614
  Transmission Date: 20110219
  Serious: No
  Sender: FDA-Public Use
  Company Number: 1000014478

PATIENT
  Age: 32 Year
  Sex: Male

DRUGS (3)
  1. SAVELLA [Suspect]
     Indication: FIBROMYALGIA
     Dosage: 12.5 MG (12.5 MG,1 IN 1 D),ORAL; 25 MG (25 MG,1 IN1 D),ORAL; 50 MG (50 MG,1 IN 1 D),ORAL
     Route: 048
     Dates: start: 20100501, end: 20100501
  2. SAVELLA [Suspect]
     Indication: FIBROMYALGIA
     Dosage: 12.5 MG (12.5 MG,1 IN 1 D),ORAL; 25 MG (25 MG,1 IN1 D),ORAL; 50 MG (50 MG,1 IN 1 D),ORAL
     Route: 048
     Dates: start: 20100501, end: 20100501
  3. SAVELLA [Suspect]
     Indication: FIBROMYALGIA
     Dosage: 12.5 MG (12.5 MG,1 IN 1 D),ORAL; 25 MG (25 MG,1 IN1 D),ORAL; 50 MG (50 MG,1 IN 1 D),ORAL
     Route: 048
     Dates: start: 20100501, end: 20100501

REACTIONS (3)
  - INSOMNIA [None]
  - NAUSEA [None]
  - VOMITING [None]
